FAERS Safety Report 5699244-0 (Version None)
Quarter: 2008Q2

REPORT INFORMATION
  Report Type: 
  Country: None (occurrence: None)
  Receive Date: 20080407
  Receipt Date: 20080407
  Transmission Date: 20081010
  Serious: Yes (Other)
  Sender: FDA-Public Use
  Company Number: None

PATIENT
  Sex: Female
  Weight: 15.8759 kg

DRUGS (1)
  1. SINGULAIR [Suspect]
     Indication: ASTHMA PROPHYLAXIS
     Dosage: 1 TABLET ONCE PER DAY PO
     Route: 048
     Dates: start: 20080326, end: 20080402

REACTIONS (4)
  - DIARRHOEA [None]
  - FATIGUE [None]
  - LETHARGY [None]
  - VOMITING [None]
